FAERS Safety Report 5085894-1 (Version None)
Quarter: 2006Q3

REPORT INFORMATION
  Report Type: 
  Country: None (occurrence: None)
  Receive Date: 20060810
  Receipt Date: 20060703
  Transmission Date: 20061208
  Serious: Yes (Other)
  Sender: FDA-Public Use
  Company Number: 2006BH011594

PATIENT
  Age: 10 Month
  Sex: Male
  Weight: 10 kg

DRUGS (13)
  1. RECOMBINATE [Suspect]
     Indication: HAEMARTHROSIS
     Dosage: 250 UNITS; 2X A DAY; IV; SEE IMAGE
     Route: 042
     Dates: start: 20060615, end: 20060618
  2. RECOMBINATE [Suspect]
     Indication: HAEMARTHROSIS
     Dosage: 250 UNITS; 2X A DAY; IV; SEE IMAGE
     Route: 042
     Dates: start: 20060619, end: 20060625
  3. RECOMBINATE [Suspect]
     Indication: HAEMARTHROSIS
     Dosage: 250 UNITS; 2X A DAY; IV; SEE IMAGE
     Route: 042
     Dates: start: 20060608
  4. RECOMBINATE [Suspect]
     Indication: HAEMARTHROSIS
     Dosage: 250 UNITS; 2X A DAY; IV; SEE IMAGE
     Route: 042
     Dates: start: 20060626
  5. RECOMBINATE [Suspect]
     Indication: HAEMARTHROSIS
     Dosage: 250 UNITS; 2X A DAY; IV; SEE IMAGE
     Route: 042
     Dates: start: 20060628
  6. RECOMBINATE [Suspect]
     Indication: HAEMARTHROSIS
     Dosage: 250 UNITS; 2X A DAY; IV; SEE IMAGE
     Route: 042
     Dates: start: 20060629
  7. RECOMBINATE [Suspect]
     Indication: HAEMARTHROSIS
     Dosage: 250 UNITS; 2X A DAY; IV; SEE IMAGE
     Route: 042
     Dates: start: 20060630
  8. RECOMBINATE [Suspect]
     Indication: HAEMARTHROSIS
     Dosage: 250 UNITS; 2X A DAY; IV; SEE IMAGE
     Route: 042
     Dates: start: 20060701
  9. RECOMBINATE [Suspect]
     Indication: HAEMARTHROSIS
     Dosage: 250 UNITS; 2X A DAY; IV; SEE IMAGE
     Route: 042
     Dates: start: 20060702
  10. RECOMBINATE [Suspect]
     Indication: HAEMARTHROSIS
     Dosage: 250 UNITS; 2X A DAY; IV; SEE IMAGE
     Route: 042
     Dates: start: 20060703
  11. RECOMBINATE [Suspect]
     Indication: HAEMARTHROSIS
     Dosage: 250 UNITS; 2X A DAY; IV; SEE IMAGE
     Route: 042
     Dates: start: 20060705
  12. RECOMBINATE [Suspect]
     Indication: HAEMARTHROSIS
     Dosage: 250 UNITS; 2X A DAY; IV; SEE IMAGE
     Route: 042
     Dates: start: 20060707
  13. RECOMBINATE [Suspect]
     Indication: HAEMARTHROSIS
     Dosage: 250 UNITS; 2X A DAY; IV; SEE IMAGE
     Route: 042
     Dates: start: 20060710

REACTIONS (4)
  - ACTIVATED PARTIAL THROMBOPLASTIN TIME [None]
  - ACTIVATED PARTIAL THROMBOPLASTIN TIME PROLONGED [None]
  - FACTOR VIII INHIBITION [None]
  - MUSCLE HAEMORRHAGE [None]
